FAERS Safety Report 9953178 (Version 1)
Quarter: 2014Q1

REPORT INFORMATION
  Report Type: Report from Study
  Country: US (occurrence: US)
  Receive Date: 20140304
  Receipt Date: 20140304
  Transmission Date: 20141002
  Serious: Yes (Other)
  Sender: FDA-Public Use
  Company Number: PHEH2014US004215

PATIENT
  Age: 40 Year
  Sex: Female
  Weight: 48.98 kg

DRUGS (3)
  1. GILENYA [Suspect]
     Indication: MULTIPLE SCLEROSIS
     Dosage: 0.5 MG, QD
     Route: 048
     Dates: start: 20140227
  2. VYVANSE [Concomitant]
  3. PROZAC [Concomitant]

REACTIONS (1)
  - Electrocardiogram QT prolonged [Unknown]
